FAERS Safety Report 13263603 (Version 3)
Quarter: 2017Q1

REPORT INFORMATION
  Report Type: Report from Study
  Country: HU (occurrence: HU)
  Receive Date: 20170223
  Receipt Date: 20170317
  Transmission Date: 20170428
  Serious: Yes (Other)
  Sender: FDA-Public Use
  Company Number: PHHY2017HU027196

PATIENT
  Age: 42 Year
  Sex: Male

DRUGS (1)
  1. AFINITOR [Suspect]
     Active Substance: EVEROLIMUS
     Indication: PRODUCT USED FOR UNKNOWN INDICATION
     Dosage: 10 MG, UNK
     Route: 065

REACTIONS (6)
  - Pyrexia [Unknown]
  - Mucosal inflammation [Unknown]
  - Metastases to lung [Unknown]
  - Mouth injury [Recovered/Resolved]
  - Anaemia [Unknown]
  - Stomatitis [Unknown]
